FAERS Safety Report 16589036 (Version 1)
Quarter: 2019Q3

REPORT INFORMATION
  Report Type: Report from Study
  Country: CA (occurrence: CA)
  Receive Date: 20190718
  Receipt Date: 20190718
  Transmission Date: 20191004
  Serious: Yes (Other)
  Sender: FDA-Public Use
  Company Number: CA-ROCHE-2355444

PATIENT
  Age: 82 Year
  Sex: Male

DRUGS (2)
  1. RANIBIZUMAB. [Suspect]
     Active Substance: RANIBIZUMAB
     Indication: CHOROIDAL NEOVASCULARISATION
     Route: 031
  2. RANIBIZUMAB. [Suspect]
     Active Substance: RANIBIZUMAB
     Indication: AGE-RELATED MACULAR DEGENERATION

REACTIONS (1)
  - Eye haemorrhage [Recovered/Resolved]

NARRATIVE: CASE EVENT DATE: 20160224
